FAERS Safety Report 17219758 (Version 1)
Quarter: 2019Q4

REPORT INFORMATION
  Report Type: Spontaneous
  Country: US (occurrence: US)
  Receive Date: 20191231
  Receipt Date: 20191231
  Transmission Date: 20200122
  Serious: Yes (Hospitalization)
  Sender: FDA-Public Use
  Company Number: PHHY2018US178386

PATIENT
  Age: 63 Year
  Sex: Female

DRUGS (2)
  1. AMPICILLIN AND SULBACTAM [Concomitant]
     Active Substance: AMPICILLIN SODIUM\SULBACTAM SODIUM
     Indication: OSTEOMYELITIS
     Dosage: UNK
     Route: 042
  2. VANCOMYCIN [Suspect]
     Active Substance: VANCOMYCIN
     Indication: OSTEOMYELITIS
     Dosage: UNK
     Route: 041

REACTIONS (7)
  - Pyrexia [Recovered/Resolved]
  - Rash macular [Recovered/Resolved]
  - Malaise [Recovered/Resolved]
  - Eosinophilia [Recovered/Resolved]
  - Drug reaction with eosinophilia and systemic symptoms [Recovered/Resolved]
  - Rash erythematous [Recovered/Resolved]
  - Pallor [Recovered/Resolved]
